FAERS Safety Report 5623652-7 (Version None)
Quarter: 2008Q1

REPORT INFORMATION
  Report Type: 
  Country: None (occurrence: None)
  Receive Date: 20080212
  Receipt Date: 20080206
  Transmission Date: 20080703
  Serious: Yes (Other)
  Sender: FDA-Public Use
  Company Number: GR-BOEHRINGER INGELHEIM GMBH, GERMANY-2008-BP-01803RO

PATIENT
  Age: 28 Year
  Sex: Female

DRUGS (7)
  1. CYCLOPHOSPHAMIDE [Suspect]
     Indication: STEM CELL TRANSPLANT
     Route: 042
     Dates: start: 20010201
  2. METHOTREXATE [Suspect]
     Indication: PROPHYLAXIS AGAINST GRAFT VERSUS HOST DISEASE
     Dates: start: 20010201
  3. CYCLOSPORINE [Suspect]
     Indication: PROPHYLAXIS AGAINST GRAFT VERSUS HOST DISEASE
     Dates: start: 20010201
  4. BUSULFAN [Suspect]
     Indication: STEM CELL TRANSPLANT
     Route: 048
     Dates: start: 20010201
  5. PREDNISONE TAB [Concomitant]
     Indication: CHRONIC GRAFT VERSUS HOST DISEASE
  6. MYCOPHENOLATE MOPHETIL [Concomitant]
     Indication: CHRONIC GRAFT VERSUS HOST DISEASE
  7. ESTROGEN [Concomitant]
     Indication: VAGINAL STRICTURE

REACTIONS (10)
  - ACUTE GRAFT VERSUS HOST DISEASE [None]
  - AMENORRHOEA [None]
  - CHRONIC GRAFT VERSUS HOST DISEASE [None]
  - DRY EYE [None]
  - LIVER FUNCTION TEST ABNORMAL [None]
  - OVARIAN FAILURE [None]
  - STOMATITIS [None]
  - VAGINAL OBSTRUCTION [None]
  - VAGINAL STRICTURE [None]
  - VULVOVAGINAL DRYNESS [None]
